FAERS Safety Report 12727015 (Version 3)
Quarter: 2019Q1

REPORT INFORMATION
  Report Type: Spontaneous
  Country: CA (occurrence: CA)
  Receive Date: 20160909
  Receipt Date: 20190123
  Transmission Date: 20190417
  Serious: Yes (Hospitalization, Other)
  Sender: FDA-Public Use
  Company Number: CA-ORION CORPORATION ORION PHARMA-TREX2016-1663

PATIENT
  Age: 83 Year
  Sex: Female

DRUGS (11)
  1. ATENOLOL. [Concomitant]
     Active Substance: ATENOLOL
     Dosage: STRENGTH: 50 MG
     Route: 065
  2. ARAVA [Suspect]
     Active Substance: LEFLUNOMIDE
     Indication: PRODUCT USED FOR UNKNOWN INDICATION
     Route: 065
  3. ACETYLSALICYLIC ACID [Concomitant]
     Active Substance: ASPIRIN
     Dosage: STRENGTH: 80 MG
     Route: 065
  4. LOSARTAN. [Concomitant]
     Active Substance: LOSARTAN
     Dosage: STRENGTH: 100 MG
     Route: 065
  5. FOLIC ACID. [Concomitant]
     Active Substance: FOLIC ACID
     Dosage: STRENGTH: 5 MG
     Route: 065
  6. PLAQUENIL [Suspect]
     Active Substance: HYDROXYCHLOROQUINE SULFATE
     Indication: PRODUCT USED FOR UNKNOWN INDICATION
     Route: 065
  7. ATORVASTATIN [Concomitant]
     Active Substance: ATORVASTATIN
     Dosage: STRENGTH: 40 MG
     Route: 048
  8. VITAMIN D [Concomitant]
     Active Substance: CHOLECALCIFEROL
     Dosage: STRENGTH: 1000 MG
     Route: 065
  9. PANTOPRAZOLE [Concomitant]
     Active Substance: PANTOPRAZOLE
     Dosage: STRENGTH: 40 MG
     Route: 065
  10. CALCIUM [Concomitant]
     Active Substance: CALCIUM
     Dosage: STRENGTH: 500 MG
     Route: 065
  11. METHOTREXATE (TRADE NAME UNKNOWN) [Suspect]
     Active Substance: METHOTREXATE
     Indication: RHEUMATOID ARTHRITIS
     Route: 065

REACTIONS (7)
  - Anaemia [Unknown]
  - Macular degeneration [Unknown]
  - White blood cell count decreased [Unknown]
  - Muscle atrophy [Not Recovered/Not Resolved]
  - Asthenia [Unknown]
  - Arthritis [Not Recovered/Not Resolved]
  - Bone marrow failure [Unknown]

NARRATIVE: CASE EVENT DATE: 201601
